FAERS Safety Report 6527329-5 (Version None)
Quarter: 2010Q1

REPORT INFORMATION
  Report Type: 
  Country: None (occurrence: None)
  Receive Date: 20100104
  Receipt Date: 20100104
  Transmission Date: 20100710
  Serious: Yes (Life-Threatening, Hospitalization)
  Sender: FDA-Public Use
  Company Number: None

PATIENT
  Age: 24 Year
  Sex: Female
  Weight: 88.4514 kg

DRUGS (1)
  1. OCELLA 3MG/0.03MG BAYER HEALTHCARE PHARMACEUTICALS [Suspect]
     Indication: MENSTRUAL DISORDER
     Dosage: 3MG/0.03MG ONE DAILY PO
     Route: 048

REACTIONS (3)
  - BACK PAIN [None]
  - DEEP VEIN THROMBOSIS [None]
  - PULMONARY EMBOLISM [None]
